FAERS Safety Report 14353985 (Version 1)
Quarter: 2018Q1

REPORT INFORMATION
  Report Type: Spontaneous
  Country: US (occurrence: US)
  Receive Date: 20180105
  Receipt Date: 20180105
  Transmission Date: 20180509
  Serious: Yes (Other)
  Sender: FDA-Public Use
  Company Number: US-ASTRAZENECA-2018SE00690

PATIENT
  Age: 67 Year
  Sex: Female
  Weight: 81.6 kg

DRUGS (1)
  1. SYMBICORT [Suspect]
     Active Substance: BUDESONIDE\FORMOTEROL FUMARATE DIHYDRATE
     Indication: ASTHMA
     Dosage: 80/4.5 MCG 2 PUFFS DAILY
     Route: 055

REACTIONS (7)
  - Memory impairment [Unknown]
  - Breast cancer [Unknown]
  - Osteoporosis [Unknown]
  - Adverse event [Unknown]
  - Feeling abnormal [Unknown]
  - Intentional product misuse [Not Recovered/Not Resolved]
  - Sinus headache [Unknown]

NARRATIVE: CASE EVENT DATE: 2014
